FAERS Safety Report 11310840 (Version 1)
Quarter: 2015Q3

REPORT INFORMATION
  Report Type: Spontaneous
  Country: US (occurrence: US)
  Receive Date: 20150726
  Receipt Date: 20150726
  Transmission Date: 20151125
  Serious: No
  Sender: FDA-Public Use
  Company Number: US-AMGEN-USASP2015071934

PATIENT
  Age: 62 Year
  Sex: Female

DRUGS (1)
  1. ENBREL [Suspect]
     Active Substance: ETANERCEPT
     Indication: PRODUCT USED FOR UNKNOWN INDICATION
     Dosage: UNK
     Route: 065

REACTIONS (9)
  - Pain in extremity [Unknown]
  - Mobility decreased [Unknown]
  - Hypoaesthesia [Unknown]
  - Gait disturbance [Unknown]
  - Fall [Unknown]
  - Paraesthesia [Unknown]
  - Fatigue [Unknown]
  - Weight increased [Unknown]
  - Malaise [Unknown]
